FAERS Safety Report 8164123-6 (Version None)
Quarter: 2012Q1

REPORT INFORMATION
  Report Type: 
  Country: None (occurrence: None)
  Receive Date: 20120224
  Receipt Date: 20120222
  Transmission Date: 20120608
  Serious: Yes (Other)
  Sender: FDA-Public Use
  Company Number: US-PFIZER INC-2007006563

PATIENT
  Sex: Male
  Weight: 97.506 kg

DRUGS (5)
  1. CARDURA [Suspect]
     Indication: BLOOD PRESSURE
     Dosage: 4 MG, UNK
  2. CARDURA [Suspect]
     Dosage: 8 MG, UNK
  3. DOXAZOSIN MESYLATE [Suspect]
     Indication: HYPERTENSION
     Dosage: 8 MG, DAILY
  4. VITAMIN TAB [Concomitant]
     Dosage: UNK
  5. DIOVAN [Suspect]
     Indication: HYPERTENSION
     Dosage: UNK

REACTIONS (6)
  - INSOMNIA [None]
  - PROSTATE CANCER [None]
  - HEADACHE [None]
  - FATIGUE [None]
  - BLOOD PRESSURE INCREASED [None]
  - ALOPECIA [None]
